FAERS Safety Report 6169879-X (Version None)
Quarter: 2009Q2

REPORT INFORMATION
  Report Type: 
  Country: None (occurrence: None)
  Receive Date: 20090428
  Receipt Date: 20090417
  Transmission Date: 20091009
  Serious: Yes (Other)
  Sender: FDA-Public Use
  Company Number: US-BAYER-200911212BCC

PATIENT
  Age: 62 Year
  Sex: Female
  Weight: 57 kg

DRUGS (1)
  1. MIDOL [Suspect]
     Indication: MENSTRUAL DISORDER
     Route: 048
     Dates: start: 19820101, end: 19820101

REACTIONS (5)
  - HYPERSENSITIVITY [None]
  - NASAL CONGESTION [None]
  - PRURITUS [None]
  - SWELLING FACE [None]
  - URTICARIA [None]
